FAERS Safety Report 7465491-0 (Version None)
Quarter: 2011Q2

REPORT INFORMATION
  Report Type: 
  Country: None (occurrence: None)
  Receive Date: 20110509
  Receipt Date: 20110504
  Transmission Date: 20111010
  Serious: Yes (Other)
  Sender: FDA-Public Use
  Company Number: BR-ROCHE-771710

PATIENT
  Sex: Female
  Weight: 64 kg

DRUGS (7)
  1. ISOTRETINOIN [Suspect]
     Indication: ACNE
     Dosage: FIRST TREATMENT
     Route: 048
  2. INSULIN [Concomitant]
  3. ESTREVA GEL [Concomitant]
     Indication: MENOPAUSE
  4. SINVASTACOR [Concomitant]
  5. AMYTRIL [Concomitant]
  6. ISOTRETINOIN [Suspect]
     Dosage: FREQUENCY: DAILY, SECOND TREATMENT
     Route: 048
     Dates: start: 20100701, end: 20101201
  7. METHYLTESTOSTERONE [Concomitant]
     Indication: MENOPAUSE

REACTIONS (5)
  - SYNCOPE [None]
  - JOINT SPRAIN [None]
  - ANKLE FRACTURE [None]
  - HYPOGLYCAEMIA [None]
  - ACNE [None]
